FAERS Safety Report 10153538 (Version 2)
Quarter: 2014Q3

REPORT INFORMATION
  Report Type: Spontaneous
  Country: BR (occurrence: BR)
  Receive Date: 20140505
  Receipt Date: 20140730
  Transmission Date: 20150326
  Serious: No
  Sender: FDA-Public Use
  Company Number: PHHY2014BR050220

PATIENT
  Sex: Female
  Weight: 112 kg

DRUGS (8)
  1. VISKEN [Suspect]
     Active Substance: PINDOLOL
     Dosage: 0.5 DF (10 MG, (TWICE A DAY)
     Route: 048
  2. VISKEN [Suspect]
     Active Substance: PINDOLOL
     Indication: HYPERTENSION
     Dosage: 5 MG, (EVERY 12 HRS/TWICE A DAY)
     Route: 048
  3. HYDROCHLOROTHIAZIDE. [Suspect]
     Active Substance: HYDROCHLOROTHIAZIDE
     Dosage: 1 DF, (50 MG) DAILY
     Route: 048
  4. AAS [Concomitant]
     Active Substance: ASPIRIN
     Indication: HYPERTENSION
     Dosage: 1 DF, LUNCH TIME
     Route: 048
  5. PURAN [Concomitant]
     Active Substance: LEVOTHYROXINE SODIUM
     Indication: HYPOTHYROIDISM
     Dosage: 1 DF, (175 MG) IN FASTING
     Route: 048
  6. AAS [Concomitant]
     Active Substance: ASPIRIN
     Indication: COAGULOPATHY
  7. LOSARTAN [Suspect]
     Active Substance: LOSARTAN
     Dosage: 1 DF, (50 MG) DAILY
     Route: 048
  8. METILDOPA [Concomitant]
     Active Substance: METHYLDOPA
     Indication: HYPERTENSION
     Dosage: 4 DF, (250 MG) DAILY EVERY 6 HRS
     Route: 048

REACTIONS (7)
  - Blood pressure fluctuation [Recovering/Resolving]
  - Maternal exposure during pregnancy [Unknown]
  - Tremor [Recovering/Resolving]
  - Weight increased [Recovered/Resolved]
  - Asthenia [Not Recovered/Not Resolved]
  - Wrong technique in drug usage process [Unknown]
  - Blood pressure decreased [Recovering/Resolving]
